FAERS Safety Report 8986502 (Version 4)
Quarter: 2014Q1

REPORT INFORMATION
  Report Type: Report from Study
  Country: BR (occurrence: BR)
  Receive Date: 20121226
  Receipt Date: 20140319
  Transmission Date: 20141002
  Serious: Yes (Hospitalization, Other)
  Sender: FDA-Public Use
  Company Number: BR-ROCHE-1169445

PATIENT
  Age: 48 Year
  Sex: Female
  Weight: 62 kg

DRUGS (6)
  1. MABTHERA [Suspect]
     Indication: RHEUMATOID ARTHRITIS
     Route: 042
     Dates: start: 20100701, end: 20120709
  2. MABTHERA [Suspect]
     Route: 042
     Dates: start: 200908
  3. MABTHERA [Suspect]
     Dosage: LAST DOSE WAS ON SEP/2013
     Route: 042
  4. ARAVA [Concomitant]
     Indication: RHEUMATOID ARTHRITIS
  5. DIOVAN [Concomitant]
     Indication: RHEUMATOID ARTHRITIS
  6. TYLENOL [Concomitant]
     Indication: PREMEDICATION

REACTIONS (3)
  - Thyroid cancer [Recovered/Resolved]
  - Malignant neoplasm of unknown primary site [Unknown]
  - White blood cell count decreased [Recovered/Resolved]
